FAERS Safety Report 22257747 (Version 1)
Quarter: 2023Q2

REPORT INFORMATION
  Report Type: Spontaneous
  Country: PL (occurrence: PL)
  Receive Date: 20230427
  Receipt Date: 20230427
  Transmission Date: 20230722
  Serious: Yes (Death)
  Sender: FDA-Public Use
  Company Number: PL-002147023-NVSC2023PL095638

PATIENT
  Age: 49 Year
  Sex: Female

DRUGS (1)
  1. ELTROMBOPAG OLAMINE [Suspect]
     Active Substance: ELTROMBOPAG OLAMINE
     Indication: Thrombocytopenia
     Dosage: 75 MG, QD
     Route: 065
     Dates: start: 20221007

REACTIONS (2)
  - Portal vein thrombosis [Fatal]
  - Mesenteric vein thrombosis [Fatal]

NARRATIVE: CASE EVENT DATE: 20230301
